FAERS Safety Report 10074054 (Version 1)
Quarter: 2014Q2

REPORT INFORMATION
  Report Type: Spontaneous
  Country: US (occurrence: US)
  Receive Date: 20140412
  Receipt Date: 20140412
  Transmission Date: 20141212
  Serious: No
  Sender: FDA-Public Use
  Company Number: US-009507513-1404USA005417

PATIENT
  Sex: Male

DRUGS (4)
  1. REMERON [Suspect]
     Indication: ANXIETY DISORDER
     Dosage: HALF OF A 15MG DOSE ONCE DAILY
     Route: 048
  2. REMERON [Suspect]
     Dosage: 45 MG, ONCE DAILY
     Route: 048
     Dates: start: 2011
  3. SYNTHROID [Concomitant]
  4. BUSPIRONE HYDROCHLORIDE [Concomitant]

REACTIONS (3)
  - Hunger [Not Recovered/Not Resolved]
  - Weight increased [Recovering/Resolving]
  - Off label use [Unknown]
